FAERS Safety Report 8207917 (Version 2)
Quarter: 2013Q3

REPORT INFORMATION
  Report Type: Spontaneous
  Country: US (occurrence: US)
  Receive Date: 20111028
  Receipt Date: 20130909
  Transmission Date: 20140515
  Serious: Yes (Other)
  Sender: FDA-Public Use
  Company Number: US-GLAXOSMITHKLINE-A0940216A

PATIENT
  Age: 47 Year
  Sex: Female

DRUGS (6)
  1. ADVAIR [Suspect]
     Indication: ASTHMA
     Route: 055
     Dates: start: 1999
  2. VENTOLIN [Concomitant]
  3. CLARITIN [Concomitant]
  4. TYLENOL [Concomitant]
  5. IBUPROFEN [Concomitant]
  6. EYE DROPS [Concomitant]

REACTIONS (9)
  - Diverticulitis [Unknown]
  - Dyspnoea [Unknown]
  - Chest discomfort [Recovered/Resolved]
  - Vision blurred [Unknown]
  - Incorrect product storage [Unknown]
  - Product quality issue [Unknown]
  - Headache [Unknown]
  - Eye disorder [Unknown]
  - Adverse event [Unknown]
